FAERS Safety Report 14013713 (Version 1)
Quarter: 2017Q3

REPORT INFORMATION
  Report Type: Report from Study
  Country: US (occurrence: US)
  Receive Date: 20170926
  Receipt Date: 20170926
  Transmission Date: 20171128
  Serious: Yes (Hospitalization)
  Sender: FDA-Public Use
  Company Number: PHEH2017US030503

PATIENT
  Age: 70 Year
  Sex: Female

DRUGS (1)
  1. VOTRIENT [Suspect]
     Active Substance: PAZOPANIB HYDROCHLORIDE
     Indication: RENAL CELL CARCINOMA
     Dosage: 400 MG, UNK
     Route: 048
     Dates: start: 20170710, end: 20170726

REACTIONS (3)
  - Metastases to pancreas [Unknown]
  - Abdominal pain [Unknown]
  - Anastomotic complication [Recovered/Resolved with Sequelae]

NARRATIVE: CASE EVENT DATE: 20170726
